FAERS Safety Report 7378116-X (Version None)
Quarter: 2011Q1

REPORT INFORMATION
  Report Type: 
  Country: None (occurrence: None)
  Receive Date: 20110328
  Receipt Date: 20110318
  Transmission Date: 20110831
  Serious: Yes (Other)
  Sender: FDA-Public Use
  Company Number: GB-ASTRAZENECA-2011SE15354

PATIENT
  Age: 56 Year
  Sex: Male
  Weight: 95.3 kg

DRUGS (5)
  1. ATENOLOL [Suspect]
     Dosage: ALMUS BRAND
  2. CANDESARTAN [Concomitant]
  3. ATENOLOL [Suspect]
  4. AMLODIPINE [Concomitant]
  5. ATENOLOL [Suspect]
     Route: 048
     Dates: start: 20080218

REACTIONS (2)
  - DRUG INEFFECTIVE [None]
  - BLOOD PRESSURE INCREASED [None]
